FAERS Safety Report 7734117-0 (Version None)
Quarter: 2011Q3

REPORT INFORMATION
  Report Type: 
  Country: None (occurrence: None)
  Receive Date: 20110907
  Receipt Date: 20110825
  Transmission Date: 20111222
  Serious: Yes (Hospitalization)
  Sender: FDA-Public Use
  Company Number: DE-ROCHE-800932

PATIENT
  Sex: Female
  Weight: 79 kg

DRUGS (7)
  1. SPIRONOLACTONE [Concomitant]
     Route: 048
     Dates: start: 20100501
  2. CALCIMAGON-D3 [Concomitant]
     Route: 048
     Dates: start: 20100827
  3. TORSEMIDE [Concomitant]
     Indication: PORTAL HYPERTENSION
     Route: 048
     Dates: start: 20100827
  4. ALLOPURINOL [Concomitant]
     Route: 048
     Dates: start: 20110801
  5. PANTOPRAZOLE [Concomitant]
     Route: 048
     Dates: start: 20100501
  6. RIBAVIRIN [Suspect]
     Route: 048
     Dates: start: 20101001, end: 20110304
  7. PEGINTERFERON ALFA-2A [Suspect]
     Route: 058
     Dates: start: 20101001, end: 20110304

REACTIONS (1)
  - PLEURAL EFFUSION [None]
